FAERS Safety Report 6388156-5 (Version None)
Quarter: 2009Q4

REPORT INFORMATION
  Report Type: 
  Country: None (occurrence: None)
  Receive Date: 20091001
  Receipt Date: 20091001
  Transmission Date: 20100525
  Serious: Yes (Hospitalization, Other)
  Sender: FDA-Public Use
  Company Number: None

PATIENT
  Age: 85 Year
  Sex: Female
  Weight: 74.3899 kg

DRUGS (1)
  1. OMEPRAZOLE [Suspect]
     Indication: GASTRIC ULCER
     Dosage: ONE CAP DAILY ORAL
     Route: 048
     Dates: start: 20090722, end: 20090809

REACTIONS (1)
  - FREQUENT BOWEL MOVEMENTS [None]
